FAERS Safety Report 9159142 (Version 1)
Quarter: 2013Q1

REPORT INFORMATION
  Report Type: Spontaneous
  Country: US (occurrence: None)
  Receive Date: 20130311
  Receipt Date: 20130311
  Transmission Date: 20140127
  Serious: Yes (Death, Hospitalization, Other)
  Sender: FDA-Public Use
  Company Number: 2013P1002804

PATIENT
  Age: 51 Year
  Sex: Female

DRUGS (4)
  1. CARISOPRODOL [Suspect]
     Indication: INTENTIONAL OVERDOSE
     Dates: end: 201008
  2. CLONAZEPAM [Suspect]
     Dates: end: 201008
  3. MELATONIN [Suspect]
     Dates: end: 201008
  4. ATIVAN [Suspect]
     Dates: end: 201008

REACTIONS (14)
  - Urinary bladder rupture [None]
  - Intentional overdose [None]
  - Aspiration [None]
  - Pneumonia aspiration [None]
  - Toxicity to various agents [None]
  - Unresponsive to stimuli [None]
  - Tachypnoea [None]
  - Pain [None]
  - Soft tissue haemorrhage [None]
  - Hyperhidrosis [None]
  - Pulmonary oedema [None]
  - Pulmonary congestion [None]
  - Bronchopneumonia [None]
  - Hepatic fibrosis [None]
